FAERS Safety Report 5279775-8 (Version None)
Quarter: 2007Q1

REPORT INFORMATION
  Report Type: 
  Country: None (occurrence: None)
  Receive Date: 20061215
  Receipt Date: 20060626
  Transmission Date: 20070707
  Serious: Yes (Hospitalization)
  Sender: FDA-Public Use
  Company Number: HQWYE439028JUN06

PATIENT
  Age: 55 Year
  Sex: Female
  Weight: 52.66 kg

DRUGS (11)
  1. EFFEXOR XR [Suspect]
     Indication: DEPRESSION
     Dosage: (3) 75 MG CAPSULES IN AM AND (1) 75 MG
     Dates: start: 20060601
  2. KLONOPIN [Concomitant]
  3. DEXEDRINE [Concomitant]
  4. VALIUM [Concomitant]
  5. VITAMIN B12 [Concomitant]
  6. METHOTREXATE [Concomitant]
  7. PROMETRIUM [Concomitant]
  8. ESTRADIOL [Concomitant]
  9. SYNTHROID [Concomitant]
  10. ATENOLOL [Concomitant]
  11. PRILOSEC [Concomitant]

REACTIONS (1)
  - HAEMORRHAGE [None]
